FAERS Safety Report 8063238-0 (Version None)
Quarter: 2012Q1

REPORT INFORMATION
  Report Type: 
  Country: None (occurrence: None)
  Receive Date: 20120123
  Receipt Date: 20120117
  Transmission Date: 20120608
  Serious: Yes (Death, Hospitalization, Other)
  Sender: FDA-Public Use
  Company Number: PHHY2011BR92289

PATIENT
  Age: 83 Year
  Sex: Female

DRUGS (2)
  1. EXELON [Suspect]
     Indication: DEMENTIA ALZHEIMER'S TYPE
     Dosage: 1.5 MG, (3 CAPSULES DAILY)
     Route: 048
     Dates: start: 20110101
  2. CARBIDOPA + LEVODOPA [Concomitant]
     Indication: PARKINSON'S DISEASE
     Dosage: UNK
     Dates: start: 20110101

REACTIONS (8)
  - APHAGIA [None]
  - DRUG INEFFECTIVE [None]
  - IMPETIGO [None]
  - DEMENTIA ALZHEIMER'S TYPE [None]
  - PYREXIA [None]
  - DANDRUFF [None]
  - PNEUMONIA [None]
  - RENAL IMPAIRMENT [None]
